FAERS Safety Report 21583450 (Version 1)
Quarter: 2022Q4

REPORT INFORMATION
  Report Type: Report from Study
  Country: US (occurrence: US)
  Receive Date: 20221111
  Receipt Date: 20221111
  Transmission Date: 20230113
  Serious: Yes (Other)
  Sender: FDA-Public Use
  Company Number: US-AUROBINDO-AUR-APL-2022-042616

PATIENT
  Sex: Female

DRUGS (8)
  1. BELINOSTAT [Suspect]
     Active Substance: BELINOSTAT
     Indication: Acute myeloid leukaemia
     Dosage: 7750 MILLIGRAM
     Route: 065
     Dates: start: 20220718
  2. BELINOSTAT [Suspect]
     Active Substance: BELINOSTAT
     Dosage: 7750 MILLIGRAM
     Route: 065
     Dates: start: 20220808
  3. BELINOSTAT [Suspect]
     Active Substance: BELINOSTAT
     Dosage: 7750 MILLIGRAM
     Route: 065
     Dates: start: 20220906
  4. BELINOSTAT [Suspect]
     Active Substance: BELINOSTAT
     Dosage: 7750 MILLIGRAM
     Route: 065
     Dates: start: 20220929
  5. PEVONEDISTAT HYDROCHLORIDE [Suspect]
     Active Substance: PEVONEDISTAT HYDROCHLORIDE
     Indication: Acute myeloid leukaemia
     Dosage: 234 MILLIGRAM
     Route: 065
     Dates: start: 20220718
  6. PEVONEDISTAT HYDROCHLORIDE [Suspect]
     Active Substance: PEVONEDISTAT HYDROCHLORIDE
     Dosage: 234 MILLIGRAM
     Route: 065
     Dates: start: 20220808
  7. PEVONEDISTAT HYDROCHLORIDE [Suspect]
     Active Substance: PEVONEDISTAT HYDROCHLORIDE
     Dosage: 234 MILLIGRAM
     Route: 065
     Dates: start: 20220906
  8. PEVONEDISTAT HYDROCHLORIDE [Suspect]
     Active Substance: PEVONEDISTAT HYDROCHLORIDE
     Dosage: 234 MILLIGRAM
     Route: 065
     Dates: start: 20220926

REACTIONS (3)
  - Pain in extremity [Unknown]
  - Electrocardiogram QT prolonged [Unknown]
  - Eye pruritus [Unknown]

NARRATIVE: CASE EVENT DATE: 20220721
